FAERS Safety Report 24002847 (Version 1)
Quarter: 2024Q2

REPORT INFORMATION
  Report Type: Spontaneous
  Country: CN (occurrence: CN)
  Receive Date: 20240624
  Receipt Date: 20240624
  Transmission Date: 20240716
  Serious: Yes (Hospitalization)
  Sender: FDA-Public Use
  Company Number: None

PATIENT
  Age: 96 Year
  Sex: Male
  Weight: 60 kg

DRUGS (1)
  1. TRESIBA [Suspect]
     Active Substance: INSULIN DEGLUDEC
     Indication: Diabetes mellitus
     Dosage: 16 IU, QD
     Route: 058
     Dates: start: 20240525

REACTIONS (1)
  - Hypoglycaemic encephalopathy [Recovering/Resolving]

NARRATIVE: CASE EVENT DATE: 20240525
